FAERS Safety Report 24789605 (Version 1)
Quarter: 2024Q4

REPORT INFORMATION
  Report Type: Spontaneous
  Country: US (occurrence: None)
  Receive Date: 20241229
  Receipt Date: 20241229
  Transmission Date: 20250115
  Serious: No
  Sender: Public
  Company Number: None

PATIENT
  Age: 7 Year
  Sex: Male
  Weight: 25.65 kg

DRUGS (1)
  1. OSELTAMIVIR PHOSPHATE [Suspect]
     Active Substance: OSELTAMIVIR PHOSPHATE
     Indication: Influenza
     Dosage: 60 MG TWICE A DAY ORAL ?
     Route: 048
     Dates: start: 20241227, end: 20241229

REACTIONS (4)
  - Hallucination, visual [None]
  - Middle insomnia [None]
  - Fear [None]
  - Screaming [None]

NARRATIVE: CASE EVENT DATE: 20241228
